FAERS Safety Report 9739113 (Version 2)
Quarter: 2013Q4

REPORT INFORMATION
  Report Type: Report from Study
  Country: DE (occurrence: DE)
  Receive Date: 20131209
  Receipt Date: 20131223
  Transmission Date: 20140711
  Serious: Yes (Other)
  Sender: FDA-Public Use
  Company Number: DE-BAYER-2013-148973

PATIENT
  Age: 53 Year
  Sex: Male

DRUGS (1)
  1. BETAFERON [Suspect]
     Indication: MULTIPLE SCLEROSIS
     Dosage: 250 ?G, UNK
     Dates: start: 201103, end: 201211

REACTIONS (3)
  - Multiple sclerosis relapse [None]
  - Gait disturbance [None]
  - Multiple sclerosis relapse [Recovering/Resolving]
